FAERS Safety Report 6802217-5 (Version None)
Quarter: 2010Q2

REPORT INFORMATION
  Report Type: 
  Country: None (occurrence: None)
  Receive Date: 20100629
  Receipt Date: 20090414
  Transmission Date: 20101027
  Serious: No
  Sender: FDA-Public Use
  Company Number: US-PFIZER INC-2005146070

PATIENT
  Age: 54 Year
  Sex: Male

DRUGS (4)
  1. VIAGRA [Suspect]
     Indication: ERECTILE DYSFUNCTION
     Dosage: 100 MG, AS NEEDED
     Route: 065
  2. NOVOLIN [Concomitant]
     Indication: TYPE 1 DIABETES MELLITUS
     Route: 065
  3. PAXIL [Concomitant]
     Indication: DEPRESSION
     Route: 065
  4. BUPROPION [Concomitant]
     Indication: ERECTILE DYSFUNCTION
     Dosage: UNK

REACTIONS (1)
  - DRUG INEFFECTIVE [None]
